FAERS Safety Report 25761958 (Version 1)
Quarter: 2025Q3

REPORT INFORMATION
  Report Type: Spontaneous
  Country: EU (occurrence: EU)
  Receive Date: 20250904
  Receipt Date: 20250904
  Transmission Date: 20251021
  Serious: Yes (Other)
  Sender: MYLAN
  Company Number: None

PATIENT
  Age: 8 Year
  Sex: Female
  Weight: 30 kg

DRUGS (1)
  1. ACETAMINOPHEN [Suspect]
     Active Substance: ACETAMINOPHEN
     Indication: Arthralgia
     Dosage: 240 MILLIGRAM, QD (2 TABLETS ONCE A DAY), CHEWABLE TABLET
     Dates: start: 20250808, end: 20250808

REACTIONS (4)
  - Haematochezia [Recovering/Resolving]
  - Vomiting [Recovered/Resolved]
  - Urticaria [Recovered/Resolved]
  - Diarrhoea [Recovering/Resolving]
